FAERS Safety Report 18012572 (Version 1)
Quarter: 2020Q3

REPORT INFORMATION
  Report Type: Spontaneous
  Country: US (occurrence: US)
  Receive Date: 20200710
  Receipt Date: 20200710
  Transmission Date: 20201103
  Serious: Yes (Death)
  Sender: FDA-Public Use
  Company Number: None

PATIENT
  Age: 85 Year
  Sex: Male
  Weight: 93.8 kg

DRUGS (1)
  1. REMDESIVIR. [Suspect]
     Active Substance: REMDESIVIR
     Indication: COVID-19
     Route: 042
     Dates: start: 20200706, end: 20200707

REACTIONS (16)
  - Nausea [None]
  - Respiratory failure [None]
  - Pulmonary oedema [None]
  - Respiration abnormal [None]
  - Confusional state [None]
  - Asthenia [None]
  - Hypotension [None]
  - Unresponsive to stimuli [None]
  - Diarrhoea [None]
  - Blood bilirubin increased [None]
  - Fall [None]
  - Respiratory arrest [None]
  - Cardiac arrest [None]
  - Blood creatinine increased [None]
  - Anuria [None]
  - Hypothermia [None]

NARRATIVE: CASE EVENT DATE: 20200708
